FAERS Safety Report 6734714-5 (Version None)
Quarter: 2010Q2

REPORT INFORMATION
  Report Type: 
  Country: None (occurrence: None)
  Receive Date: 20100519
  Receipt Date: 20100519
  Transmission Date: 20101027
  Serious: Yes (Other)
  Sender: FDA-Public Use
  Company Number: None

PATIENT
  Age: 46 Year
  Sex: Female
  Weight: 46.7205 kg

DRUGS (1)
  1. BOTOX [Suspect]
     Dosage: 7 UNITS ONCE

REACTIONS (10)
  - ANXIETY [None]
  - CHILLS [None]
  - DRY EYE [None]
  - DYSSTASIA [None]
  - ECONOMIC PROBLEM [None]
  - INSOMNIA [None]
  - LYMPHADENOPATHY [None]
  - MALAISE [None]
  - NAUSEA [None]
  - PYREXIA [None]
